FAERS Safety Report 8063960-6 (Version None)
Quarter: 2012Q1

REPORT INFORMATION
  Report Type: 
  Country: None (occurrence: None)
  Receive Date: 20120123
  Receipt Date: 20120110
  Transmission Date: 20120608
  Serious: Yes (Hospitalization, Other)
  Sender: FDA-Public Use
  Company Number: BR-ROCHE-1023239

PATIENT
  Sex: Female

DRUGS (4)
  1. NASONEX [Concomitant]
  2. FLUMIL (ACETYLCYSTEINE) [Concomitant]
  3. OMALIZUMAB [Suspect]
     Indication: ASTHMA
  4. BUDESONIDE [Suspect]
     Indication: ASTHMA
     Dosage: 12/400 UG

REACTIONS (6)
  - ASTHMA [None]
  - MALAISE [None]
  - WEIGHT INCREASED [None]
  - FATIGUE [None]
  - ABDOMINAL DISTENSION [None]
  - CHEST PAIN [None]
